FAERS Safety Report 7654843-1 (Version None)
Quarter: 2011Q3

REPORT INFORMATION
  Report Type: 
  Country: None (occurrence: None)
  Receive Date: 20110728
  Receipt Date: 20110712
  Transmission Date: 20111222
  Serious: Yes (Death, Congenital Anomaly, Other)
  Sender: FDA-Public Use
  Company Number: 2011MA008726

PATIENT
  Sex: Male
  Weight: 0.28 kg

DRUGS (3)
  1. FLUOROURACIL [Suspect]
     Indication: BREAST CANCER
     Dosage: 2 CYCLES
  2. EPIRUBICIN HYDROCHLORIDE [Suspect]
     Indication: BREAST CANCER
     Dosage: 2 CYCLES
  3. CYCLOPHOSPHAMIDE [Suspect]
     Indication: BREAST CANCER
     Dosage: 2 CYCLES

REACTIONS (10)
  - MATERNAL EXPOSURE DURING PREGNANCY [None]
  - MICROGNATHIA [None]
  - ABORTION INDUCED [None]
  - CONGENITAL HAND MALFORMATION [None]
  - TERATOGENICITY [None]
  - INTRA-UTERINE DEATH [None]
  - SYNDACTYLY [None]
  - PHALANGEAL HYPOPLASIA [None]
  - CONGENITAL FOOT MALFORMATION [None]
  - CLINODACTYLY [None]
